FAERS Safety Report 9355176 (Version 2)
Quarter: 2013Q3

REPORT INFORMATION
  Report Type: Spontaneous
  Country: BR (occurrence: BR)
  Receive Date: 20130619
  Receipt Date: 20130827
  Transmission Date: 20140515
  Serious: Yes (Other)
  Sender: FDA-Public Use
  Company Number: PHHY2013BR061198

PATIENT
  Age: 34 Year
  Sex: Male

DRUGS (3)
  1. TEGRETOL [Suspect]
     Indication: CONVULSION
     Dosage: 2 DF, DAILY
     Route: 048
  2. TEGRETOL [Suspect]
     Dosage: 3 DF, DAILY
     Route: 048
  3. TEGRETOL [Suspect]
     Dosage: 5 DF, DAILY
     Route: 048

REACTIONS (7)
  - Fall [Recovered/Resolved]
  - Face injury [Recovered/Resolved]
  - Incoherent [Recovered/Resolved]
  - Convulsion [Recovered/Resolved]
  - Loss of consciousness [Recovered/Resolved]
  - Tremor [Recovered/Resolved]
  - Memory impairment [Recovered/Resolved]
